FAERS Safety Report 9544045 (Version 1)
Quarter: 2013Q3

REPORT INFORMATION
  Report Type: Spontaneous
  Country: US (occurrence: US)
  Receive Date: 20130923
  Receipt Date: 20130923
  Transmission Date: 20140515
  Serious: No
  Sender: FDA-Public Use
  Company Number: US-TEVA-434222USA

PATIENT
  Age: 20 Year
  Sex: Female
  Weight: 70.37 kg

DRUGS (3)
  1. PLAN B ONE-STEP [Suspect]
     Indication: POST COITAL CONTRACEPTION
     Dosage: 1.5 MILLIGRAM DAILY;
     Route: 048
  2. UNSPECIFIED VITAMINS [Concomitant]
     Indication: SUPPLEMENTATION THERAPY
  3. UNSPECIFIED FAT BURNERS [Concomitant]

REACTIONS (1)
  - Menstruation irregular [Not Recovered/Not Resolved]
